FAERS Safety Report 11360592 (Version 1)
Quarter: 2015Q3

REPORT INFORMATION
  Report Type: Report from Study
  Country: US (occurrence: US)
  Receive Date: 20150810
  Receipt Date: 20150810
  Transmission Date: 20151125
  Serious: Yes (Other)
  Sender: FDA-Public Use
  Company Number: PHEH2015US014565

PATIENT
  Age: 59 Year
  Sex: Female

DRUGS (6)
  1. GILENYA [Suspect]
     Active Substance: FINGOLIMOD HYDROCHLORIDE
     Indication: SECONDARY PROGRESSIVE MULTIPLE SCLEROSIS
  2. LOSARTAN. [Concomitant]
     Active Substance: LOSARTAN
     Indication: PRODUCT USED FOR UNKNOWN INDICATION
     Dosage: UNK
     Route: 065
     Dates: start: 20150521
  3. GILENYA [Suspect]
     Active Substance: FINGOLIMOD HYDROCHLORIDE
     Indication: RELAPSING-REMITTING MULTIPLE SCLEROSIS
     Dosage: 0.5 MG, QD
     Route: 048
     Dates: start: 20140221
  4. GLUCOPHAGE [Concomitant]
     Active Substance: METFORMIN HYDROCHLORIDE
     Indication: DIABETES MELLITUS
     Route: 065
  5. SKELAXIN [Concomitant]
     Active Substance: METAXALONE
     Indication: PRODUCT USED FOR UNKNOWN INDICATION
     Dosage: UNK
     Route: 065
     Dates: start: 20140407
  6. BACLOFEN. [Concomitant]
     Active Substance: BACLOFEN
     Indication: PRODUCT USED FOR UNKNOWN INDICATION
     Dosage: UNK
     Route: 065
     Dates: start: 20141231

REACTIONS (25)
  - Paraesthesia [Unknown]
  - Scoliosis [Unknown]
  - Multiple sclerosis relapse [Unknown]
  - Optic nerve disorder [Unknown]
  - Leukopenia [Unknown]
  - Central nervous system lesion [Unknown]
  - Balance disorder [Unknown]
  - Optic neuritis [Unknown]
  - Facet joint syndrome [Unknown]
  - Gait disturbance [Unknown]
  - Intervertebral disc protrusion [Unknown]
  - Ataxia [Not Recovered/Not Resolved]
  - Small fibre neuropathy [Unknown]
  - Electrocardiogram abnormal [Unknown]
  - Cerebral disorder [Unknown]
  - Alanine aminotransferase increased [Unknown]
  - Blood glucose increased [Recovered/Resolved]
  - Blood pressure increased [Unknown]
  - Cervical radiculopathy [Unknown]
  - Vertebral foraminal stenosis [Unknown]
  - Lymphopenia [Unknown]
  - Hypoaesthesia [Not Recovered/Not Resolved]
  - Spinal osteoarthritis [Unknown]
  - Intervertebral disc degeneration [Unknown]
  - Disease progression [Unknown]

NARRATIVE: CASE EVENT DATE: 201403
